FAERS Safety Report 14213561 (Version 2)
Quarter: 2018Q4

REPORT INFORMATION
  Report Type: Spontaneous
  Country: US (occurrence: US)
  Receive Date: 20171122
  Receipt Date: 20181015
  Transmission Date: 20190204
  Serious: Yes (Other)
  Sender: FDA-Public Use
  Company Number: US-CIPLA LTD.-2017US20615

PATIENT

DRUGS (3)
  1. VINCRISTINE [Suspect]
     Active Substance: VINCRISTINE
     Indication: GLIOMA
     Dosage: 1.5 MG/M2, WEEKLY
     Route: 040
  2. CARBOPLATIN. [Suspect]
     Active Substance: CARBOPLATIN
     Indication: GLIOMA
     Dosage: 640 MG/M2, INFUSION OVER 1 HOUR THE FIRST DAY OF EACH CYCLE
     Route: 042
  3. ETOPOSIDE. [Suspect]
     Active Substance: ETOPOSIDE
     Indication: GLIOMA
     Dosage: 100 MG/M2, INFUSION OVER ONE HOUR ON THE FIRST THREE DAYS OF EACH CYCLE
     Route: 042

REACTIONS (1)
  - Bone marrow failure [Unknown]
